FAERS Safety Report 9374631 (Version 2)
Quarter: 2014Q1

REPORT INFORMATION
  Report Type: Report from Study
  Country: DE (occurrence: DE)
  Receive Date: 20130628
  Receipt Date: 20140225
  Transmission Date: 20141002
  Serious: Yes (Hospitalization)
  Sender: FDA-Public Use
  Company Number: DE-ROCHE-1241624

PATIENT
  Age: 34 Year
  Sex: Female
  Weight: 125 kg

DRUGS (19)
  1. BEVACIZUMAB [Suspect]
     Indication: BREAST CANCER
     Route: 042
     Dates: start: 20120924, end: 20120924
  2. BEVACIZUMAB [Suspect]
     Route: 042
     Dates: start: 20130423, end: 20130423
  3. PACLITAXEL [Suspect]
     Indication: BREAST CANCER
     Route: 042
     Dates: start: 20120924
  4. PACLITAXEL [Suspect]
     Route: 042
     Dates: start: 20121001
  5. PACLITAXEL [Suspect]
     Route: 042
     Dates: start: 20121008
  6. PACLITAXEL [Suspect]
     Route: 042
     Dates: start: 20121015
  7. PACLITAXEL [Suspect]
     Route: 042
     Dates: start: 20121022
  8. PACLITAXEL [Suspect]
     Route: 042
     Dates: start: 20121029
  9. PACLITAXEL [Suspect]
     Route: 042
     Dates: start: 20121113
  10. PACLITAXEL [Suspect]
     Route: 042
     Dates: start: 20121119
  11. PACLITAXEL [Suspect]
     Route: 042
     Dates: start: 20121126
  12. PACLITAXEL [Suspect]
     Route: 042
     Dates: start: 20121203
  13. PACLITAXEL [Suspect]
     Route: 042
     Dates: start: 20121210
  14. PACLITAXEL [Suspect]
     Route: 042
     Dates: start: 20121217
  15. PACLITAXEL [Suspect]
     Route: 042
     Dates: start: 20130107
  16. PACLITAXEL [Suspect]
     Route: 042
     Dates: start: 20130114
  17. PACLITAXEL [Suspect]
     Route: 042
     Dates: start: 20130122
  18. PACLITAXEL [Suspect]
     Route: 042
     Dates: start: 20130128
  19. PACLITAXEL [Suspect]
     Route: 042
     Dates: start: 20130204

REACTIONS (2)
  - Cardiac failure [Recovering/Resolving]
  - Cardiomyopathy [Recovering/Resolving]
